FAERS Safety Report 9358911 (Version 4)
Quarter: 2013Q3

REPORT INFORMATION
  Report Type: Spontaneous
  Country: US (occurrence: US)
  Receive Date: 20130620
  Receipt Date: 20130712
  Transmission Date: 20140515
  Serious: Yes (Other)
  Sender: FDA-Public Use
  Company Number: US-PFIZER INC-2013182202

PATIENT
  Age: 40 Year
  Sex: Female
  Weight: 73.02 kg

DRUGS (1)
  1. ELELYSO [Suspect]
     Indication: GAUCHER^S DISEASE
     Dosage: 4400 UNITS, EVERY 2 WEEKS
     Route: 042
     Dates: start: 20130116

REACTIONS (8)
  - Blister [Recovered/Resolved]
  - Erythema [Unknown]
  - Blister infected [Recovered/Resolved]
  - Melanocytic naevus [Unknown]
  - Wound infection [Unknown]
  - Wound haemorrhage [Unknown]
  - Blood pressure diastolic increased [Not Recovered/Not Resolved]
  - Pruritus [Unknown]
